FAERS Safety Report 4859787-6 (Version None)
Quarter: 2005Q4

REPORT INFORMATION
  Report Type: 
  Country: None (occurrence: None)
  Receive Date: 20051219
  Receipt Date: 20051213
  Transmission Date: 20060501
  Serious: Yes (Death, Hospitalization)
  Sender: FDA-Public Use
  Company Number: PHBS2005US18435

PATIENT
  Age: 42 Year
  Sex: Male

DRUGS (8)
  1. CYCLOSPORINE [Suspect]
     Indication: STEM CELL TRANSPLANT
  2. METHOTREXATE [Concomitant]
  3. CYCLOPHOSPHAMIDE [Concomitant]
  4. IRRADIATION [Concomitant]
  5. PREDNISONE TAB [Concomitant]
     Indication: GRAFT VERSUS HOST DISEASE
     Dosage: 40 MG/D
  6. PREDNISONE TAB [Concomitant]
     Dosage: 120 MG/D
  7. IMIPENEM [Concomitant]
     Indication: SEPSIS
  8. VANCOMYCIN [Concomitant]
     Indication: SEPSIS

REACTIONS (10)
  - CHILLS [None]
  - COCCIDIOIDOMYCOSIS [None]
  - CYTOMEGALOVIRUS ENTERITIS [None]
  - DIARRHOEA [None]
  - GRAFT VERSUS HOST DISEASE [None]
  - PYREXIA [None]
  - RASH [None]
  - RESPIRATORY FAILURE [None]
  - SEPSIS [None]
  - VASCULITIS GASTROINTESTINAL [None]
